FAERS Safety Report 25609491 (Version 1)
Quarter: 2025Q3

REPORT INFORMATION
  Report Type: Spontaneous
  Country: CA (occurrence: CA)
  Receive Date: 20250727
  Receipt Date: 20250727
  Transmission Date: 20251021
  Serious: Yes (Life-Threatening, Hospitalization, Other)
  Sender: AMGEN
  Company Number: CA-AMGEN-CANSP2025144978

PATIENT
  Age: 57 Year
  Sex: Male
  Weight: 83 kg

DRUGS (1)
  1. ARANESP [Suspect]
     Active Substance: DARBEPOETIN ALFA
     Indication: Nephrogenic anaemia
     Dosage: 80 MICROGRAM, Q2WK
     Route: 058

REACTIONS (4)
  - Seizure [Recovering/Resolving]
  - Cerebral artery embolism [Recovering/Resolving]
  - Cerebral ischaemia [Recovering/Resolving]
  - Haemoglobin increased [Recovering/Resolving]
